FAERS Safety Report 9348760 (Version 2)
Quarter: 2013Q2

REPORT INFORMATION
  Report Type: Spontaneous
  Country: FR (occurrence: FR)
  Receive Date: 20130614
  Receipt Date: 20130628
  Transmission Date: 20140414
  Serious: Yes (Death, Hospitalization)
  Sender: FDA-Public Use
  Company Number: FR-TEVA-411415ISR

PATIENT
  Age: 69 Year
  Sex: Female

DRUGS (13)
  1. FUROSEMIDE TEVA 40 MG [Suspect]
     Indication: CARDIAC DISORDER
     Dosage: 40 MILLIGRAM DAILY;
     Route: 048
     Dates: start: 20130507, end: 20130606
  2. FUROSEMIDE TEVA 40 MG [Suspect]
     Dosage: 120 MILLIGRAM DAILY; DAILY DOSE INCREASED WHILE HOSPITALIZATION
     Route: 048
     Dates: start: 20130606
  3. NEBIVOLOL [Concomitant]
  4. NEBIVOLOL [Concomitant]
     Dosage: ALPRAZOLAM 0.5
  5. NEBIVOLOL [Concomitant]
  6. NEBIVOLOL [Concomitant]
  7. DIFFU K [Concomitant]
  8. PREVISCAN [Concomitant]
  9. ALPRAZOLAM 0.5 [Concomitant]
  10. PARACETAMOL [Concomitant]
  11. PANTOPRAZOLE [Concomitant]
  12. BISOPROLOL  0.5 [Concomitant]
  13. TOPALGIC [Concomitant]

REACTIONS (7)
  - Death [Fatal]
  - Lymphoedema [Unknown]
  - Disorientation [Unknown]
  - Pyrexia [Unknown]
  - Infection [Unknown]
  - Pulmonary oedema [Unknown]
  - Asthenia [Unknown]
